FAERS Safety Report 5937258-3 (Version None)
Quarter: 2008Q4

REPORT INFORMATION
  Report Type: 
  Country: None (occurrence: None)
  Receive Date: 20081031
  Receipt Date: 20081027
  Transmission Date: 20090506
  Serious: Yes (Death, Hospitalization)
  Sender: FDA-Public Use
  Company Number: KR-BAYER-200811009BYL

PATIENT
  Age: 57 Year
  Sex: Male
  Weight: 71 kg

DRUGS (19)
  1. BAY43-9006 [Suspect]
     Indication: HEPATIC NEOPLASM MALIGNANT
     Dosage: TOTAL DAILY DOSE: 800 MG  UNIT DOSE: 200 MG
     Route: 048
     Dates: start: 20080423, end: 20080505
  2. BAY43-9006 [Suspect]
     Dosage: TOTAL DAILY DOSE: 400 MG  UNIT DOSE: 200 MG
     Route: 048
     Dates: start: 20080513, end: 20080524
  3. BAY43-9006 [Suspect]
     Dosage: UNIT DOSE: 200 MG
     Route: 048
     Dates: start: 20080719, end: 20080808
  4. BAY43-9006 [Suspect]
     Dosage: TOTAL DAILY DOSE: 400 MG  UNIT DOSE: 200 MG
     Route: 048
     Dates: start: 20080809, end: 20080813
  5. BAY43-9006 [Suspect]
     Dosage: TOTAL DAILY DOSE: 800 MG  UNIT DOSE: 200 MG
     Route: 048
     Dates: start: 20080814, end: 20080909
  6. BAY43-9006 [Suspect]
     Dosage: TOTAL DAILY DOSE: 800 MG  UNIT DOSE: 200 MG
     Route: 048
     Dates: start: 20080910, end: 20080922
  7. GRANDPAZE-F [Concomitant]
     Indication: DYSPEPSIA
     Route: 048
     Dates: start: 20080117
  8. FUROSEMIDE [Concomitant]
     Indication: PROPHYLAXIS
     Route: 048
     Dates: start: 20080509, end: 20080915
  9. FUROSEMIDE [Concomitant]
     Route: 048
     Dates: start: 20080916, end: 20080922
  10. FUROSEMIDE [Concomitant]
     Route: 048
     Dates: start: 20080923, end: 20080930
  11. SPIRONOLACTONE [Concomitant]
     Indication: PROPHYLAXIS
     Route: 048
     Dates: start: 20080509, end: 20080915
  12. SPIRONOLACTONE [Concomitant]
     Route: 048
     Dates: start: 20080923, end: 20080930
  13. SPIRONOLACTONE [Concomitant]
     Route: 048
     Dates: start: 20080916, end: 20080922
  14. URSODESOXYCHOLIC ACID [Concomitant]
     Indication: PROPHYLAXIS
     Route: 048
     Dates: start: 20080509
  15. METOCLOPRAMIDE [Concomitant]
     Indication: DYSPEPSIA
     Route: 048
     Dates: start: 20080421, end: 20080505
  16. METOCLOPRAMIDE [Concomitant]
     Route: 048
     Dates: start: 20080909, end: 20080929
  17. METOCLOPRAMIDE [Concomitant]
     Route: 048
     Dates: start: 20080930
  18. MOSAPRIDE CITRATE [Concomitant]
     Indication: DYSPEPSIA
     Route: 048
     Dates: start: 20080421, end: 20080505
  19. ALBIS [Concomitant]
     Indication: PROPHYLAXIS AGAINST GASTROINTESTINAL ULCER
     Dosage: AS USED: 3 DF  UNIT DOSE: 1 DF
     Route: 048
     Dates: start: 20080909

REACTIONS (3)
  - ASCITES [None]
  - OESOPHAGEAL VARICES HAEMORRHAGE [None]
  - SEPSIS [None]
